FAERS Safety Report 13153580 (Version 1)
Quarter: 2017Q1

REPORT INFORMATION
  Report Type: Spontaneous
  Country: US (occurrence: US)
  Receive Date: 20170120
  Receipt Date: 20170120
  Transmission Date: 20170428
  Serious: Yes (Disabling, Other)
  Sender: FDA-Public Use
  Company Number: None

PATIENT
  Age: 61 Year
  Sex: Male
  Weight: 99 kg

DRUGS (3)
  1. GABAPENTIN. [Concomitant]
     Active Substance: GABAPENTIN
  2. CELECOXIB. [Concomitant]
     Active Substance: CELECOXIB
  3. WARFARIN TEVA 1 MG TABLETS [Suspect]
     Active Substance: WARFARIN
     Indication: THROMBOSIS
     Dosage: ?          QUANTITY:1 TABLET(S);?
     Route: 048
     Dates: start: 20150913, end: 20160412

REACTIONS (3)
  - Neck pain [None]
  - Arthritis [None]
  - Headache [None]

NARRATIVE: CASE EVENT DATE: 20150913
